FAERS Safety Report 9440220 (Version 1)
Quarter: 2013Q3

REPORT INFORMATION
  Report Type: Spontaneous
  Country: JP (occurrence: JP)
  Receive Date: 20130805
  Receipt Date: 20130805
  Transmission Date: 20140515
  Serious: Yes (Other)
  Sender: FDA-Public Use
  Company Number: PHHY2013JP083208

PATIENT
  Age: 80 Year
  Sex: Male

DRUGS (2)
  1. DIOVAN [Suspect]
     Dosage: UNK
     Route: 048
  2. PLETAAL [Concomitant]
     Route: 048

REACTIONS (7)
  - Cerebrovascular accident [Unknown]
  - Lacunar infarction [Unknown]
  - Erythema multiforme [Unknown]
  - Erythema [Unknown]
  - Urticaria [Unknown]
  - Skin lesion [Unknown]
  - Pruritus [Unknown]
